FAERS Safety Report 10685864 (Version 2)
Quarter: 2015Q1

REPORT INFORMATION
  Report Type: Spontaneous
  Country: US (occurrence: US)
  Receive Date: 20141231
  Receipt Date: 20150122
  Transmission Date: 20150720
  Serious: Yes (Hospitalization)
  Sender: FDA-Public Use
  Company Number: US-PFIZER INC-2014358781

PATIENT
  Age: 68 Year
  Sex: Male
  Weight: 81.63 kg

DRUGS (2)
  1. CAVERJECT [Suspect]
     Active Substance: ALPROSTADIL
     Dosage: 20 ?G, UNK
     Dates: start: 2014
  2. CAVERJECT [Suspect]
     Active Substance: ALPROSTADIL
     Indication: ERECTILE DYSFUNCTION
     Dosage: 10 ?G, UNK
     Dates: start: 1995

REACTIONS (2)
  - Fall [Unknown]
  - Muscle rupture [Unknown]
